FAERS Safety Report 10464616 (Version 6)
Quarter: 2017Q3

REPORT INFORMATION
  Report Type: Report from Study
  Country: US (occurrence: US)
  Receive Date: 20140919
  Receipt Date: 20170802
  Transmission Date: 20171127
  Serious: Yes (Hospitalization, Other)
  Sender: FDA-Public Use
  Company Number: US-PFIZER INC-2014255083

PATIENT
  Age: 15 Year
  Sex: Male
  Weight: 76 kg

DRUGS (20)
  1. METHOTREXATE SODIUM. [Suspect]
     Active Substance: METHOTREXATE SODIUM
     Indication: ANAPLASTIC LARGE CELL LYMPHOMA T- AND NULL-CELL TYPES
     Dosage: PROPHASE: 7.5-12MG ON DAY 1 (AGE BASED DOSING)
     Route: 037
     Dates: start: 20131206
  2. DEXAMETHASONE. [Suspect]
     Active Substance: DEXAMETHASONE
     Indication: ANAPLASTIC LARGE CELL LYMPHOMA T- AND NULL-CELL TYPES
     Dosage: PROPHASE:5 MG/M2, 1X/DAY ON DAYS 1-2
     Route: 048
     Dates: start: 20131206
  3. CRIZOTINIB [Suspect]
     Active Substance: CRIZOTINIB
     Indication: ANAPLASTIC LARGE CELL LYMPHOMA T- AND NULL-CELL TYPES
     Dosage: COURSE A: 165 MG/M2, 2X/DAY, ON DAYS 1-21
     Route: 048
     Dates: start: 20131211
  4. METHOTREXATE SODIUM. [Suspect]
     Active Substance: METHOTREXATE SODIUM
     Dosage: COURSE B: 3000 MG/M2, OVER 3 HOURS ON DAY 1
     Route: 042
     Dates: end: 20140402
  5. IFOSFAMIDE. [Suspect]
     Active Substance: IFOSFAMIDE
     Indication: ANAPLASTIC LARGE CELL LYMPHOMA T- AND NULL-CELL TYPES
     Dosage: COURSE A: 800 MG/M2, OVER 60 MIN ON DAYS 1-5
     Route: 042
     Dates: start: 20131211, end: 20140316
  6. CRIZOTINIB [Suspect]
     Active Substance: CRIZOTINIB
     Dosage: COURSE B: 165 MG/M2, 2X/DAY, ON DAYS 1-21
     Route: 048
     Dates: end: 20140420
  7. CYCLOPHOSPHAMIDE. [Suspect]
     Active Substance: CYCLOPHOSPHAMIDE
     Indication: ANAPLASTIC LARGE CELL LYMPHOMA T- AND NULL-CELL TYPES
     Dosage: PROPHASE: 200 MG/M2, OVER 15-30 MIN ON DAYS 1 AND 2
     Route: 042
     Dates: start: 20131206
  8. ETOPOSIDE. [Suspect]
     Active Substance: ETOPOSIDE
     Indication: ANAPLASTIC LARGE CELL LYMPHOMA T- AND NULL-CELL TYPES
     Dosage: COURSE A 100 MG/M2, OVER 2 HOURS ON DAYS 4 AND 5
     Route: 042
     Dates: start: 20131211, end: 20140316
  9. CLARITIN [Concomitant]
     Active Substance: LORATADINE
     Dosage: UNK
  10. CYTARABINE. [Suspect]
     Active Substance: CYTARABINE
     Dosage: COURSE A: 150MG/M2, OVER 1 HOUR Q 12HOURS ON DAYS 4 AND 5 (TOTAL 4 DOSES)
     Route: 042
     Dates: start: 20131211, end: 20140316
  11. DEXAMETHASONE. [Suspect]
     Active Substance: DEXAMETHASONE
     Dosage: PROPHASE :5 MG/M2, TWICE DAILY ON DAYS 3-5
     Route: 048
     Dates: start: 20131208
  12. ZOFRAN [Concomitant]
     Active Substance: ONDANSETRON HYDROCHLORIDE
     Dosage: UNK
  13. DOXORUBICIN HCL [Suspect]
     Active Substance: DOXORUBICIN HYDROCHLORIDE
     Indication: ANAPLASTIC LARGE CELL LYMPHOMA T- AND NULL-CELL TYPES
     Dosage: COURSE B: 25 MG/M2, OVER 1-15 MIN ON DAYS 4 AND 5
     Route: 042
     Dates: end: 20140406
  14. HYDROCORTISONE. [Suspect]
     Active Substance: HYDROCORTISONE
     Indication: ANAPLASTIC LARGE CELL LYMPHOMA T- AND NULL-CELL TYPES
     Dosage: PROPHASE: 7.5-12MG ON DAY 1 (AGE BASED DOSING)
     Route: 037
     Dates: start: 20131206, end: 20131206
  15. CYCLOPHOSPHAMIDE. [Suspect]
     Active Substance: CYCLOPHOSPHAMIDE
     Dosage: COURSE B: 200 MG/M2, OVER 15-30 MIN ON DAYS 1-5
     Route: 042
     Dates: end: 20140406
  16. DEXAMETHASONE. [Suspect]
     Active Substance: DEXAMETHASONE
     Dosage: COURSE A 5 MG/M2, 2X/DAY ON DAYS 1-5
     Route: 048
     Dates: start: 20131211
  17. ZANTAC [Concomitant]
     Active Substance: RANITIDINE HYDROCHLORIDE
  18. METHOTREXATE SODIUM. [Suspect]
     Active Substance: METHOTREXATE SODIUM
     Dosage: COURSE A: 3000 MG/M2, OVER 3 HOURS ON DAY 1
     Route: 042
     Dates: start: 20131211, end: 20140402
  19. CYTARABINE. [Suspect]
     Active Substance: CYTARABINE
     Indication: ANAPLASTIC LARGE CELL LYMPHOMA T- AND NULL-CELL TYPES
     Dosage: PROPHASE: 15-24MG ON DAY 1 (AGE BASED DOSING)
     Route: 037
     Dates: start: 20131206
  20. DEXAMETHASONE. [Suspect]
     Active Substance: DEXAMETHASONE
     Dosage: COURSE B 5 MG/M2, 2X/DAY ON DAYS 1-5
     Route: 048
     Dates: end: 20140406

REACTIONS (8)
  - Dehydration [Recovered/Resolved]
  - Stomatitis [Recovered/Resolved]
  - Pneumonia [Recovered/Resolved]
  - Hypoalbuminaemia [Recovered/Resolved]
  - Febrile neutropenia [Recovered/Resolved]
  - Thrombocytopenia [Recovered/Resolved]
  - Pulmonary embolism [Recovered/Resolved]
  - White blood cell count decreased [Recovered/Resolved]

NARRATIVE: CASE EVENT DATE: 20140411
